FAERS Safety Report 7339386-7 (Version None)
Quarter: 2011Q1

REPORT INFORMATION
  Report Type: 
  Country: None (occurrence: None)
  Receive Date: 20110308
  Receipt Date: 20110221
  Transmission Date: 20110831
  Serious: Yes (Other)
  Sender: FDA-Public Use
  Company Number: GB-NAPPMUNDI-GBR-2011-0007616

PATIENT
  Sex: Female

DRUGS (17)
  1. RAMIPRIL [Concomitant]
     Indication: CARDIAC DISORDER
     Dosage: 1.25 MG, DAILY
  2. ADCAL-D3 [Concomitant]
     Indication: ARTERIAL DISORDER
     Dosage: 2 DF, DAILY
     Dates: end: 20110209
  3. DIAZEPAM [Suspect]
     Indication: MUSCLE SPASMS
     Dosage: 2 MG, TID
     Dates: start: 20101012
  4. MOVELAT                            /00479601/ [Concomitant]
     Indication: PRURITUS
     Dosage: 125 G, UNK
  5. BUTRANS 5MG TRANSDERMAL PATCH [Suspect]
     Dosage: 5 MCG, Q1H
     Route: 062
     Dates: start: 20101001
  6. CO-CODAMOL [Concomitant]
     Indication: BACK PAIN
     Dosage: 4000 MG, DAILY
  7. NITROMIN                           /00003201/ [Concomitant]
     Indication: ANGINA PECTORIS
  8. BUTRANS 5MG TRANSDERMAL PATCH [Suspect]
     Indication: BACK PAIN
     Dosage: 10 MCG, Q1H
     Route: 062
     Dates: start: 20101030
  9. PARACETAMOL [Concomitant]
  10. SIMVASTATIN [Concomitant]
     Indication: BLOOD CHOLESTEROL ABNORMAL
     Dosage: 40 MG, DAILY
  11. RANITIDINE [Concomitant]
     Indication: OESOPHAGEAL ULCER
     Dosage: 150 MG, BID
  12. FUROSEMIDE [Concomitant]
     Dosage: 40 MG, DAILY
  13. CLOPIDOGREL [Concomitant]
     Dosage: 75 MG, DAILY
  14. LACTULOSE [Concomitant]
     Indication: LAXATIVE SUPPORTIVE CARE
  15. HYDROCORTISONE [Concomitant]
     Indication: PRURITUS
  16. BISOPROLOL FUMARATE [Concomitant]
     Indication: CARDIAC DISORDER
     Dosage: 1.25 MG, DAILY
  17. SENNA                              /00142201/ [Concomitant]
     Indication: LAXATIVE SUPPORTIVE CARE
     Dosage: UNK

REACTIONS (6)
  - PALLOR [None]
  - HYPERTENSION [None]
  - COAGULOPATHY [None]
  - DYSPNOEA [None]
  - ELECTROCARDIOGRAM ABNORMAL [None]
  - ARTERIAL OCCLUSIVE DISEASE [None]
